FAERS Safety Report 17366189 (Version 4)
Quarter: 2020Q3

REPORT INFORMATION
  Report Type: Spontaneous
  Country: US (occurrence: US)
  Receive Date: 20200204
  Receipt Date: 20200811
  Transmission Date: 20201102
  Serious: No
  Sender: FDA-Public Use
  Company Number: US-PFIZER INC-2020047923

PATIENT
  Age: 71 Year
  Sex: Female

DRUGS (1)
  1. XELJANZ [Suspect]
     Active Substance: TOFACITINIB CITRATE
     Indication: ALOPECIA UNIVERSALIS
     Dosage: 5 MG, 2X/DAY

REACTIONS (5)
  - Confusional state [Unknown]
  - Abnormal behaviour [Unknown]
  - Off label use [Unknown]
  - Memory impairment [Unknown]
  - Product use in unapproved indication [Unknown]
